FAERS Safety Report 9966793 (Version 2)
Quarter: 2014Q1

REPORT INFORMATION
  Report Type: Report from Study
  Country: US (occurrence: US)
  Receive Date: 20140305
  Receipt Date: 20140305
  Transmission Date: 20141002
  Serious: No
  Sender: FDA-Public Use
  Company Number: US-ABBVIE-13P-163-1034083-00

PATIENT
  Age: 76 Year
  Sex: Female

DRUGS (22)
  1. HUMIRA [Suspect]
     Indication: RHEUMATOID ARTHRITIS
     Dates: start: 20101219, end: 201212
  2. HUMIRA [Suspect]
     Indication: CROHN^S DISEASE
     Dates: start: 201301
  3. HUMIRA [Suspect]
     Indication: PSORIASIS
  4. EVISTA [Concomitant]
     Indication: HORMONE REPLACEMENT THERAPY
  5. IMURAN [Concomitant]
     Indication: CROHN^S DISEASE
  6. PROZAC [Concomitant]
     Indication: NERVOUSNESS
  7. LIPITOR [Concomitant]
     Indication: BLOOD CHOLESTEROL
     Dosage: Q HS
  8. NEXIUM [Concomitant]
     Indication: GASTROOESOPHAGEAL REFLUX DISEASE
  9. SINGULAIR [Concomitant]
     Indication: ASTHMA
     Dosage: Q HS
  10. SINGULAIR [Concomitant]
     Indication: SINUSITIS
  11. VALIUM [Concomitant]
     Indication: NERVOUSNESS
  12. VALIUM [Concomitant]
  13. DOXEPIN [Concomitant]
     Indication: FIBROMYALGIA
     Dosage: Q HS
  14. AMBIEN [Concomitant]
     Indication: INSOMNIA
     Dosage: Q HS
  15. FLORASTOR [Concomitant]
     Indication: MIGRAINE
  16. BUDESONIDE [Concomitant]
     Indication: ASTHMA
     Dosage: VIA NEBULIZER DAILY
  17. VICODIN [Concomitant]
     Indication: MUSCULOSKELETAL STIFFNESS
     Dosage: 5/500 EACH MORNING
  18. FIORICET WITH CODEINE [Concomitant]
     Indication: MIGRAINE
     Dosage: AT NOON
  19. BEANO [Concomitant]
     Indication: PRODUCT USED FOR UNKNOWN INDICATION
  20. SENOKOT [Concomitant]
     Indication: PRODUCT USED FOR UNKNOWN INDICATION
  21. ADVIL PM [Concomitant]
     Indication: PRODUCT USED FOR UNKNOWN INDICATION
  22. VITAMINS [Concomitant]
     Indication: PRODUCT USED FOR UNKNOWN INDICATION

REACTIONS (9)
  - Bronchitis [Recovered/Resolved]
  - Incorrect dose administered [Recovered/Resolved]
  - Injection site pain [Recovered/Resolved]
  - Crohn^s disease [Unknown]
  - Arthritis [Unknown]
  - Psoriasis [Unknown]
  - Incorrect dose administered [Unknown]
  - Injection site bruising [Recovered/Resolved]
  - Balance disorder [Recovered/Resolved]
